FAERS Safety Report 4939452-7 (Version None)
Quarter: 2006Q1

REPORT INFORMATION
  Report Type: 
  Country: None (occurrence: None)
  Receive Date: 20060306
  Receipt Date: 20060220
  Transmission Date: 20060701
  Serious: Yes (Other)
  Sender: FDA-Public Use
  Company Number: GB200602003928

PATIENT
  Age: 53 Year
  Sex: Female
  Weight: 44.5 kg

DRUGS (4)
  1. YENTREVE (DULOXETINE HYDROCHLORIDE UNKNOWN FORMULATION) [Suspect]
     Indication: URINARY INCONTINENCE
     Dosage: UNK, 2/D, ORAL
     Route: 048
     Dates: start: 20060118, end: 20060202
  2. DIAZEPAM [Concomitant]
  3. CLOTRIMAZOLE [Concomitant]
  4. ENSURE (AMINO ACIDS NOS, MINERALS NOS, VITAMINS NOS) [Concomitant]

REACTIONS (1)
  - LIVER FUNCTION TEST ABNORMAL [None]
